FAERS Safety Report 22129521 (Version 1)
Quarter: 2023Q1

REPORT INFORMATION
  Report Type: Spontaneous
  Country: US (occurrence: None)
  Receive Date: 20230322
  Receipt Date: 20230322
  Transmission Date: 20230418
  Serious: Yes (Hospitalization)
  Sender: FDA-Public Use
  Company Number: None

PATIENT
  Age: 61 Year
  Sex: Male
  Weight: 79.4 kg

DRUGS (1)
  1. PAXLOVID [Suspect]
     Active Substance: NIRMATRELVIR\RITONAVIR
     Dates: start: 20230304, end: 20230307

REACTIONS (4)
  - Nausea [None]
  - Vomiting [None]
  - Chest pain [None]
  - Haemorrhage [None]

NARRATIVE: CASE EVENT DATE: 20230307
